FAERS Safety Report 4732852-X (Version None)
Quarter: 2005Q3

REPORT INFORMATION
  Report Type: 
  Country: None (occurrence: None)
  Receive Date: 20050803
  Receipt Date: 20041021
  Transmission Date: 20060218
  Serious: No
  Sender: FDA-Public Use
  Company Number: US-GLAXOSMITHKLINE-A0530793A

PATIENT
  Age: 68 Year
  Sex: Female

DRUGS (11)
  1. AVANDAMET [Suspect]
     Dosage: 1TAB TWICE PER DAY
     Route: 048
     Dates: start: 20040929
  2. AVANDIA [Suspect]
     Route: 048
     Dates: start: 20040401, end: 20040901
  3. FOSAMAX [Suspect]
     Indication: DRUG USE FOR UNKNOWN INDICATION
     Dates: start: 20040901, end: 20041001
  4. GLUCOSAMINE + CHONDROITIN [Concomitant]
  5. HYDROCHLOROTHIAZIDE [Concomitant]
  6. FLONASE [Concomitant]
  7. LECITHIN [Concomitant]
  8. DIOVAN [Concomitant]
  9. RESTAMIN [Concomitant]
  10. CALCIUM GLUCONATE [Concomitant]
  11. MULTI-VITAMIN [Concomitant]

REACTIONS (6)
  - BLOOD GLUCOSE INCREASED [None]
  - CONSTIPATION [None]
  - DIARRHOEA [None]
  - JOINT SWELLING [None]
  - OEDEMA PERIPHERAL [None]
  - WEIGHT INCREASED [None]
